FAERS Safety Report 11833754 (Version 1)
Quarter: 2015Q4

REPORT INFORMATION
  Report Type: Spontaneous
  Country: KR (occurrence: KR)
  Receive Date: 20151214
  Receipt Date: 20151214
  Transmission Date: 20160305
  Serious: Yes (Other)
  Sender: FDA-Public Use
  Company Number: PHHY2015KR161448

PATIENT
  Age: 56 Year
  Sex: Male

DRUGS (7)
  1. MORPHINE [Suspect]
     Active Substance: MORPHINE
     Dosage: 30 UNK, UNK
     Route: 042
  2. OXYCODONE HYDROCHLORIDE. [Suspect]
     Active Substance: OXYCODONE HYDROCHLORIDE
     Indication: PAIN
     Dosage: 480 MG, BID
     Route: 065
  3. MORPHINE [Suspect]
     Active Substance: MORPHINE
     Dosage: 160 MG, UNK
     Route: 042
  4. MORPHINE [Suspect]
     Active Substance: MORPHINE
     Indication: PAIN
     Dosage: 100 MG, UNK
     Route: 042
  5. GABAPENTIN. [Suspect]
     Active Substance: GABAPENTIN
     Indication: PAIN
     Dosage: 900 MG, TID
     Route: 065
  6. FENTANYL. [Suspect]
     Active Substance: FENTANYL
     Indication: PAIN
     Dosage: 825 UG/HR, UNK
     Route: 062
  7. TRAMADOL. [Suspect]
     Active Substance: TRAMADOL
     Indication: PAIN
     Dosage: 50 MG, TID
     Route: 065

REACTIONS (4)
  - Sedation [Unknown]
  - Therapeutic response decreased [Unknown]
  - Pain [Unknown]
  - Hallucination [Unknown]
